FAERS Safety Report 13536929 (Version 1)
Quarter: 2017Q2

REPORT INFORMATION
  Report Type: Spontaneous
  Country: CA (occurrence: CA)
  Receive Date: 20170511
  Receipt Date: 20170511
  Transmission Date: 20170830
  Serious: Yes (Hospitalization)
  Sender: FDA-Public Use
  Company Number: CA-JNJFOC-20170500207

PATIENT

DRUGS (21)
  1. NAPROXEN. [Suspect]
     Active Substance: NAPROXEN
     Indication: CARDIAC FAILURE
     Route: 065
  2. KETOPROFEN. [Suspect]
     Active Substance: KETOPROFEN
     Indication: CARDIAC FAILURE
     Route: 065
  3. ROSIGLITAZONE [Suspect]
     Active Substance: ROSIGLITAZONE
     Indication: CARDIAC FAILURE
     Route: 065
  4. AMIODARONE [Concomitant]
     Active Substance: AMIODARONE
     Indication: PRODUCT USED FOR UNKNOWN INDICATION
     Route: 065
  5. DIGITALIS [Concomitant]
     Active Substance: DIGITALIS
     Indication: PRODUCT USED FOR UNKNOWN INDICATION
     Route: 065
  6. DIFLUNISAL. [Suspect]
     Active Substance: DIFLUNISAL
     Indication: CARDIAC FAILURE
     Route: 065
  7. INDOMETHACIN. [Suspect]
     Active Substance: INDOMETHACIN
     Indication: CARDIAC FAILURE
     Route: 065
  8. IBUPROFEN. [Suspect]
     Active Substance: IBUPROFEN
     Route: 065
  9. NIFEDIPINE. [Suspect]
     Active Substance: NIFEDIPINE
     Indication: CARDIAC FAILURE
     Route: 065
  10. VERAPAMIL [Suspect]
     Active Substance: VERAPAMIL HYDROCHLORIDE
     Indication: CARDIAC FAILURE
     Route: 065
  11. DICLOFENAC [Suspect]
     Active Substance: DICLOFENAC
     Indication: CARDIAC FAILURE
     Route: 065
  12. IBUPROFEN. [Suspect]
     Active Substance: IBUPROFEN
     Indication: CARDIAC FAILURE
     Route: 065
  13. PIROXICAM. [Suspect]
     Active Substance: PIROXICAM
     Indication: CARDIAC FAILURE
     Route: 065
  14. TENOXICAM [Suspect]
     Active Substance: TENOXICAM
     Indication: CARDIAC FAILURE
     Route: 065
  15. MELOXICAM. [Suspect]
     Active Substance: MELOXICAM
     Indication: CARDIAC FAILURE
     Route: 065
  16. SULINDAC. [Suspect]
     Active Substance: SULINDAC
     Indication: CARDIAC FAILURE
     Route: 065
  17. PIOGLITAZONE. [Suspect]
     Active Substance: PIOGLITAZONE
     Indication: CARDIAC FAILURE
     Route: 065
  18. CELECOXIB. [Suspect]
     Active Substance: CELECOXIB
     Indication: CARDIAC FAILURE
     Route: 065
  19. ROFECOXIB [Suspect]
     Active Substance: ROFECOXIB
     Indication: CARDIAC FAILURE
     Route: 065
  20. DILTIAZEM. [Suspect]
     Active Substance: DILTIAZEM
     Indication: CARDIAC FAILURE
     Route: 065
  21. WARFARIN [Concomitant]
     Active Substance: WARFARIN
     Indication: PRODUCT USED FOR UNKNOWN INDICATION
     Route: 065

REACTIONS (5)
  - Cardiac failure [Unknown]
  - Cardiovascular disorder [Unknown]
  - Adverse event [Unknown]
  - Off label use [Unknown]
  - Product use issue [Unknown]
